FAERS Safety Report 5486482-5 (Version None)
Quarter: 2007Q4

REPORT INFORMATION
  Report Type: 
  Country: None (occurrence: None)
  Receive Date: 20071016
  Receipt Date: 20071011
  Transmission Date: 20080405
  Serious: Yes (Other)
  Sender: FDA-Public Use
  Company Number: B0490901A

PATIENT
  Sex: Male

DRUGS (1)
  1. ZIAGEN [Suspect]
     Indication: HIV INFECTION
     Route: 065

REACTIONS (2)
  - DRUG HYPERSENSITIVITY [None]
  - RENAL FAILURE [None]
